FAERS Safety Report 7074522-1 (Version None)
Quarter: 2010Q4

REPORT INFORMATION
  Report Type: 
  Country: None (occurrence: None)
  Receive Date: 20101029
  Receipt Date: 20101021
  Transmission Date: 20110411
  Serious: Yes (Other)
  Sender: FDA-Public Use
  Company Number: US-US-EMD SERONO, INC.-7015476

PATIENT
  Sex: Female
  Weight: 127 kg

DRUGS (3)
  1. REBIF [Suspect]
     Indication: MULTIPLE SCLEROSIS
     Route: 058
     Dates: start: 20080506
  2. ALTMED [Concomitant]
     Indication: MIGRAINE
  3. BACLOFEN [Concomitant]

REACTIONS (7)
  - BURNING SENSATION [None]
  - INJECTION SITE PAIN [None]
  - MUSCLE SPASMS [None]
  - OVARIAN CYST [None]
  - PAIN IN EXTREMITY [None]
  - RASH PAPULAR [None]
  - SYSTEMIC LUPUS ERYTHEMATOSUS [None]
